FAERS Safety Report 19103831 (Version 1)
Quarter: 2021Q2

REPORT INFORMATION
  Report Type: Spontaneous
  Country: SE (occurrence: SE)
  Receive Date: 20210407
  Receipt Date: 20210407
  Transmission Date: 20210717
  Serious: Yes (Other)
  Sender: FDA-Public Use
  Company Number: SE-TEVA-2021-SE-1898061

PATIENT
  Age: 66 Year
  Sex: Female

DRUGS (3)
  1. LOSARTAN. [Suspect]
     Active Substance: LOSARTAN
     Route: 065
  2. COMIRNATY [Suspect]
     Active Substance: TOZINAMERAN
     Dates: start: 20210303, end: 20210303
  3. COMIRNATY [Suspect]
     Active Substance: TOZINAMERAN
     Route: 030
     Dates: start: 20210203, end: 20210203

REACTIONS (1)
  - Petechiae [Not Recovered/Not Resolved]

NARRATIVE: CASE EVENT DATE: 20210217
